FAERS Safety Report 15799182 (Version 1)
Quarter: 2019Q1

REPORT INFORMATION
  Report Type: Report from Study
  Country: US (occurrence: US)
  Receive Date: 20190108
  Receipt Date: 20190108
  Transmission Date: 20190417
  Serious: Yes (Other)
  Sender: FDA-Public Use
  Company Number: US-JAZZ-2017-US-016703

PATIENT
  Sex: Female

DRUGS (57)
  1. XYREM [Suspect]
     Active Substance: SODIUM OXYBATE
     Indication: CATAPLEXY
     Dosage: DOSE ADJUSTMENTS
     Route: 048
     Dates: start: 201502, end: 201503
  2. XYREM [Suspect]
     Active Substance: SODIUM OXYBATE
     Dosage: 4.5 G, BID
     Route: 048
     Dates: start: 201503
  3. MOMETASONE FUROATE. [Concomitant]
     Active Substance: MOMETASONE FUROATE
  4. DICYCLOVERINE [Concomitant]
     Active Substance: DICYCLOMINE HYDROCHLORIDE
  5. OMEPRAZOLE. [Concomitant]
     Active Substance: OMEPRAZOLE
  6. NITROFURANTOIN. [Concomitant]
     Active Substance: NITROFURANTOIN
  7. XANAX [Concomitant]
     Active Substance: ALPRAZOLAM
  8. METRONIDAZOLE. [Concomitant]
     Active Substance: METRONIDAZOLE
  9. HYOSCYAMINE. [Concomitant]
     Active Substance: HYOSCYAMINE
  10. CEFPROZIL. [Concomitant]
     Active Substance: CEFPROZIL
  11. PREDNISONE. [Concomitant]
     Active Substance: PREDNISONE
  12. TRAZODONE [Concomitant]
     Active Substance: TRAZODONE HYDROCHLORIDE
  13. AMITRIPTYLINE HCL [Concomitant]
     Active Substance: AMITRIPTYLINE
  14. DEXILANT [Concomitant]
     Active Substance: DEXLANSOPRAZOLE
  15. PROMETHAZINE [Concomitant]
     Active Substance: PROMETHAZINE\PROMETHAZINE HYDROCHLORIDE
  16. OXYBUTYNIN. [Concomitant]
     Active Substance: OXYBUTYNIN CHLORIDE
  17. YAZ [Concomitant]
     Active Substance: DROSPIRENONE\ETHINYL ESTRADIOL
  18. ROZEREM [Concomitant]
     Active Substance: RAMELTEON
  19. HYDROXYZINE [Concomitant]
     Active Substance: HYDROXYZINE HYDROCHLORIDE
  20. ZITHROMAX [Concomitant]
     Active Substance: AZITHROMYCIN DIHYDRATE
  21. NAPROXEN. [Concomitant]
     Active Substance: NAPROXEN
  22. SINGULAIR [Concomitant]
     Active Substance: MONTELUKAST SODIUM
  23. XYREM [Suspect]
     Active Substance: SODIUM OXYBATE
     Indication: NARCOLEPSY
     Dosage: 2.25 G, BID
     Route: 048
     Dates: start: 201502, end: 201502
  24. NUVIGIL [Suspect]
     Active Substance: ARMODAFINIL
     Indication: PRODUCT USED FOR UNKNOWN INDICATION
     Dosage: UNK
     Dates: start: 20160606, end: 201612
  25. EVENING PRIMROSE OIL [Concomitant]
     Active Substance: EVENING PRIMROSE OIL\HERBALS
  26. CARISOPRODOL. [Concomitant]
     Active Substance: CARISOPRODOL
  27. DEPO-PROVERA [Concomitant]
     Active Substance: MEDROXYPROGESTERONE ACETATE
  28. SALBUTAMOL SULFATE [Concomitant]
     Active Substance: ALBUTEROL SULFATE
  29. CYCLOBENZAPRINE. [Concomitant]
     Active Substance: CYCLOBENZAPRINE
  30. MELOXICAM. [Concomitant]
     Active Substance: MELOXICAM
  31. SIMETHICONE (DIMETHICONE) [Concomitant]
     Active Substance: DIMETHICONE
  32. AMOXICILLIN. [Concomitant]
     Active Substance: AMOXICILLIN
  33. LEVONORGESTREL. [Concomitant]
     Active Substance: LEVONORGESTREL
  34. LIDOCAINE HCL [Concomitant]
     Active Substance: LIDOCAINE HYDROCHLORIDE
  35. TRETINOIN. [Concomitant]
     Active Substance: TRETINOIN
  36. VESICARE [Concomitant]
     Active Substance: SOLIFENACIN SUCCINATE
  37. HYDROXYZINE HYDROCHLORIDE. [Concomitant]
     Active Substance: HYDROXYZINE HYDROCHLORIDE
  38. DIFLUCAN [Concomitant]
     Active Substance: FLUCONAZOLE
  39. BACTRIM [Concomitant]
     Active Substance: SULFAMETHOXAZOLE\TRIMETHOPRIM
  40. HYDROCODONE/HOMATROPINE [Concomitant]
     Active Substance: HOMATROPINE METHYLBROMIDE\HYDROCODONE BITARTRATE
  41. DIAZEPAM. [Concomitant]
     Active Substance: DIAZEPAM
  42. EFFEXOR [Concomitant]
     Active Substance: VENLAFAXINE HYDROCHLORIDE
  43. ALBUTEROL SULFATE. [Concomitant]
     Active Substance: ALBUTEROL SULFATE
  44. ADDERALL [Concomitant]
     Active Substance: AMPHETAMINE ASPARTATE\AMPHETAMINE SULFATE\DEXTROAMPHETAMINE SACCHARATE\DEXTROAMPHETAMINE SULFATE
  45. ACZONE [Concomitant]
     Active Substance: DAPSONE
  46. VENLAFAXINE HCL [Concomitant]
     Active Substance: VENLAFAXINE HYDROCHLORIDE
  47. GLICLAZIDE [Concomitant]
     Active Substance: GLICLAZIDE
  48. ONEXTON [Concomitant]
     Active Substance: BENZOYL PEROXIDE\CLINDAMYCIN PHOSPHATE
  49. CIMETIDINE [Concomitant]
     Active Substance: CIMETIDINE
  50. PYRIDIUM [Concomitant]
     Active Substance: PHENAZOPYRIDINE
  51. TRIAMCINOLONE [Concomitant]
     Active Substance: TRIAMCINOLONE
  52. CEFALEXIN [Concomitant]
     Active Substance: CEPHALEXIN
  53. VALIUM [Concomitant]
     Active Substance: DIAZEPAM
  54. ALPRAZOLAM. [Concomitant]
     Active Substance: ALPRAZOLAM
  55. SPRINTEC [Concomitant]
     Active Substance: ETHINYL ESTRADIOL\NORGESTIMATE
  56. MODAFINIL. [Concomitant]
     Active Substance: MODAFINIL
  57. TRAMADOL HCL [Concomitant]
     Active Substance: TRAMADOL HYDROCHLORIDE

REACTIONS (7)
  - Dizziness [Unknown]
  - Depression [Recovering/Resolving]
  - Irritable bowel syndrome [Not Recovered/Not Resolved]
  - Enuresis [Unknown]
  - Hypersensitivity [Recovered/Resolved]
  - Drug ineffective [Not Recovered/Not Resolved]
  - Drooling [Unknown]
